FAERS Safety Report 8556693-0 (Version None)
Quarter: 2012Q3

REPORT INFORMATION
  Report Type: 
  Country: None (occurrence: None)
  Receive Date: 20120801
  Receipt Date: 20120723
  Transmission Date: 20120928
  Serious: Yes (Other)
  Sender: FDA-Public Use
  Company Number: JP-ASTELLAS-2012JP003270

PATIENT
  Sex: Female
  Weight: 52 kg

DRUGS (12)
  1. TACROLIMUS [Suspect]
     Dosage: 4.5 MG, UNKNOWN/D
     Route: 048
     Dates: start: 20110629, end: 20110726
  2. TACROLIMUS [Suspect]
     Dosage: 1 MG, BID
     Route: 048
     Dates: start: 20110831, end: 20111114
  3. BETAMETHASONE [Concomitant]
     Indication: COLITIS ULCERATIVE
     Dosage: 0.5 MG, UNKNOWN/D
     Route: 054
     Dates: start: 20110215, end: 20110530
  4. TACROLIMUS [Suspect]
     Dosage: 2.5 MG, UNKNOWN/D
     Route: 048
     Dates: start: 20111115
  5. CEFAZOLIN SODIUM [Concomitant]
     Indication: PROPHYLAXIS
     Dosage: 3000 MG, UNKNOWN/D
     Route: 048
     Dates: start: 20100831
  6. LANSOPRAZOLE [Concomitant]
     Dosage: 30 MG, UNKNOWN/D
     Route: 048
     Dates: start: 20110628
  7. TACROLIMUS [Suspect]
     Dosage: 2 MG, BID
     Route: 048
     Dates: start: 20110605, end: 20110611
  8. TACROLIMUS [Suspect]
     Dosage: 2.5 MG, BID
     Route: 048
     Dates: start: 20110612, end: 20110628
  9. FAMOTIDINE [Concomitant]
     Dosage: 40 MG, UNKNOWN/D
     Route: 048
     Dates: start: 20100614, end: 20110628
  10. ASACOL [Concomitant]
     Indication: COLITIS ULCERATIVE
     Dosage: 3600 MG, UNKNOWN/D
     Route: 048
     Dates: start: 20110426
  11. TACROLIMUS [Suspect]
     Indication: COLITIS ULCERATIVE
     Dosage: 1.5 MG, BID
     Route: 048
     Dates: start: 20110531, end: 20110604
  12. TACROLIMUS [Suspect]
     Dosage: 2 MG, BID
     Route: 048
     Dates: start: 20110727, end: 20110830

REACTIONS (1)
  - LIVER DISORDER [None]
